FAERS Safety Report 6538737-0 (Version None)
Quarter: 2010Q1

REPORT INFORMATION
  Report Type: 
  Country: None (occurrence: None)
  Receive Date: 20100114
  Receipt Date: 20100114
  Transmission Date: 20100710
  Serious: Yes (Hospitalization)
  Sender: FDA-Public Use
  Company Number: None

PATIENT
  Age: 66 Year
  Sex: Female
  Weight: 72.7 kg

DRUGS (1)
  1. VALTREX [Suspect]
     Indication: DRUG USE FOR UNKNOWN INDICATION
     Dosage: 500 MG DAILY PO
     Route: 048
     Dates: start: 20090301, end: 20100110

REACTIONS (3)
  - HALLUCINATIONS, MIXED [None]
  - SELF-INJURIOUS IDEATION [None]
  - SUICIDAL IDEATION [None]
